FAERS Safety Report 9316700 (Version 1)
Quarter: 2013Q1

REPORT INFORMATION
  Report Type: Spontaneous
  Country: DK (occurrence: None)
  Receive Date: 20130123
  Receipt Date: 20130123
  Transmission Date: 20140127
  Serious: Yes (Life-Threatening, Hospitalization)
  Sender: FDA-Public Use
  Company Number: 2013MA000515

PATIENT
  Age: 91 Year
  Sex: 0

DRUGS (19)
  1. DOXYCYCLINE HYCLATE DELAYED-RELEASE TABLETS 100MG (BASE0 (AELIC) (DOXCYCLINE) [Suspect]
     Indication: CHRONIC OBSTRUCTIVE PULMONARY DISEASE
     Route: 048
     Dates: start: 20100804
  2. FLUCLOXACLILLIN (FLUCLOXACILLIN) [Suspect]
     Route: 048
     Dates: start: 20090710, end: 20090715
  3. CIPROFLOXACIN (CIPROFLOXACIN) [Suspect]
     Indication: UROSEPSIS
     Route: 042
     Dates: start: 20110324
  4. ERTAPENEM (ERTAPENEM) [Suspect]
     Indication: URINARY TRACT INFECTION
     Route: 042
     Dates: start: 20110330, end: 20110331
  5. BENZYLPENICILLIN (BENZYLPENICILLIN) [Suspect]
     Indication: PNEUMONIA
     Dates: start: 20110130
  6. LEVOFLOXACIN (LEVOFLOXACIN) [Suspect]
     Indication: PNEUMONIA
     Dates: start: 20110130, end: 20110225
  7. UNIPHYLLIN CONTINUS [Concomitant]
  8. THIAMINE [Concomitant]
  9. VITAMIN B [Concomitant]
  10. ADCAL-D3 [Concomitant]
  11. IPRATROPIUM BROMIDE [Concomitant]
  12. SALBUTAMOL [Concomitant]
  13. PARACETAMOL [Concomitant]
  14. QUETIAPINE [Concomitant]
  15. ATORVASTATIN [Suspect]
     Indication: UROSEPSIS
     Route: 042
     Dates: start: 20110324
  16. ACETYLSALICYLIC ACID [Suspect]
     Indication: URINARY TRACT INFECTION
     Route: 042
     Dates: start: 20110324, end: 20110330
  17. SENNA [Suspect]
     Indication: PNEUMONIA
     Dates: start: 20110130
  18. BUMETANIDE [Suspect]
     Indication: PNEUMONIA
     Dates: start: 20110130, end: 20110225
  19. BUMETANIDE [Suspect]
     Indication: RENAL FAILURE ACUTE
     Dates: start: 20110130, end: 20110225

REACTIONS (8)
  - Confusional state [None]
  - Dysuria [None]
  - Hypotension [None]
  - Urosepsis [None]
  - Escherichia test positive [None]
  - Pneumonia [None]
  - Diarrhoea [None]
  - Clostridium test positive [None]
